FAERS Safety Report 7298260-5 (Version None)
Quarter: 2011Q1

REPORT INFORMATION
  Report Type: 
  Country: None (occurrence: None)
  Receive Date: 20110217
  Receipt Date: 20100331
  Transmission Date: 20110831
  Serious: No
  Sender: FDA-Public Use
  Company Number: US-PFIZER INC-2010002626

PATIENT
  Sex: Male

DRUGS (3)
  1. DORZOLAMIDE HYDROCHLORIDE AND TIMOLOL MALEATE [Concomitant]
     Dosage: UNK
     Route: 047
  2. NEOSPORIN EYE DROPS [Concomitant]
     Dosage: UNK
     Route: 047
  3. XALATAN [Suspect]
     Dosage: 2 GTT, 2X/DAY
     Route: 047
     Dates: start: 20090301

REACTIONS (1)
  - DRUG INEFFECTIVE [None]
